FAERS Safety Report 11540669 (Version 1)
Quarter: 2015Q3

REPORT INFORMATION
  Report Type: Spontaneous
  Country: US (occurrence: US)
  Receive Date: 20150923
  Receipt Date: 20150923
  Transmission Date: 20151125
  Serious: No
  Sender: FDA-Public Use
  Company Number: US-BEH-2015051994

PATIENT
  Sex: Male
  Weight: 96 kg

DRUGS (18)
  1. IBUPROFEN. [Concomitant]
     Active Substance: IBUPROFEN
     Dosage: 1 DOSE AS DIRECTED
  2. PRIVIGEN [Suspect]
     Active Substance: HUMAN IMMUNOGLOBULIN G
     Route: 042
  3. ACETAMINOPHEN. [Concomitant]
     Active Substance: ACETAMINOPHEN
     Dosage: 1 DOSE AS DIRECTED
     Route: 048
  4. LIDOCAINE/PRILOCAINE [Concomitant]
     Indication: PREMEDICATION
     Dosage: 1 DOSE AS DIRECTED
     Route: 061
  5. LMX [Concomitant]
     Active Substance: LIDOCAINE
     Dosage: 1 DOSE AS DIRECTED
  6. EPIPEN AUTOINJECTOR [Concomitant]
     Indication: ANAPHYLACTIC REACTION
     Dosage: 1 DOSE AS DIRECTED
     Route: 030
  7. VICODIN 5-500 [Concomitant]
     Dosage: 1 DOSE AS DIRECTED
     Route: 048
  8. MAGNESIUM [Concomitant]
     Active Substance: MAGNESIUM
     Dosage: 1 DOSE AS DIRECTED
     Route: 048
  9. FERROUS SULFATE [Concomitant]
     Active Substance: FERROUS SULFATE\FERROUS SULFATE, DRIED
     Dosage: 1 DOSE AS DIRECTED
     Route: 048
  10. FLUCONAZOLE. [Concomitant]
     Active Substance: FLUCONAZOLE
     Dosage: 1 DOSE AS DIRECTED
     Route: 048
  11. DIPHENHYDRAMINE. [Concomitant]
     Active Substance: DIPHENHYDRAMINE
     Dosage: 1 DOSE AS DIRECTED
     Route: 042
  12. DIPHENHYDRAMINE HYDROCHLORIDE. [Concomitant]
     Active Substance: DIPHENHYDRAMINE HYDROCHLORIDE
     Dosage: 50MG/ML ; 1 DOSE AS DIRECTED
     Route: 042
  13. CVS VITAMIN E 400 UNIT CAPSULE [Concomitant]
  14. AMOXICILLIN. [Concomitant]
     Active Substance: AMOXICILLIN
     Dosage: 1 DOSE AS DIRECTED
     Route: 048
  15. PRIVIGEN [Suspect]
     Active Substance: HUMAN IMMUNOGLOBULIN G
     Indication: PRODUCT USED FOR UNKNOWN INDICATION
     Route: 042
  16. HEPARIN [Concomitant]
     Active Substance: HEPARIN SODIUM
     Indication: FLUSHING
     Dosage: 10 UN/ML - 1 DOSE AS DIRECTED
     Route: 042
  17. SODIUM CHLORIDE. [Concomitant]
     Active Substance: SODIUM CHLORIDE
     Dosage: 1 DOSE AS DIRECTED
     Route: 042
  18. NORMAL SALINE [Concomitant]
     Active Substance: SODIUM CHLORIDE
     Dosage: 1 DOSE AS DIRCETED
     Route: 042

REACTIONS (1)
  - Skin infection [Unknown]
